FAERS Safety Report 8352940-9 (Version None)
Quarter: 2012Q1

REPORT INFORMATION
  Report Type: 
  Country: None (occurrence: None)
  Receive Date: 20120315
  Receipt Date: 20110510
  Transmission Date: 20120608
  Serious: No
  Sender: FDA-Public Use
  Company Number: PHHY2011US34948

PATIENT
  Age: 30 Year
  Sex: Female

DRUGS (1)
  1. GILENYA [Suspect]
     Indication: MULTIPLE SCLEROSIS
     Dosage: 0.5 MG, DAILY, ORAL, 0.5 MG, DAILY, ORAL
     Route: 048
     Dates: start: 20110204

REACTIONS (6)
  - NAUSEA [None]
  - MALAISE [None]
  - BALANCE DISORDER [None]
  - VOMITING [None]
  - INCORRECT DOSE ADMINISTERED [None]
  - DIZZINESS [None]
